FAERS Safety Report 10771106 (Version 2)
Quarter: 2015Q2

REPORT INFORMATION
  Report Type: Spontaneous
  Country: FR (occurrence: FR)
  Receive Date: 20150206
  Receipt Date: 20150408
  Transmission Date: 20150821
  Serious: Yes (Hospitalization, Other)
  Sender: FDA-Public Use
  Company Number: FR-PFIZER INC-2015044526

PATIENT
  Age: 75 Year
  Sex: Male

DRUGS (13)
  1. EFFEXOR LP [Suspect]
     Active Substance: VENLAFAXINE HYDROCHLORIDE
     Dosage: 37.5 MG, DAILY
     Route: 048
  2. ZYLORIC [Concomitant]
     Active Substance: ALLOPURINOL
     Dosage: 200 MG, 1X/DAY
     Route: 048
  3. PREVISCAN [Concomitant]
     Active Substance: FLUINDIONE
     Dosage: 20 MG, DAILY
     Route: 048
  4. NEURONTIN [Concomitant]
     Active Substance: GABAPENTIN
     Dosage: 800 MG, 3X/DAY
     Route: 048
  5. LANTUS [Concomitant]
     Active Substance: INSULIN GLARGINE
     Dosage: 100 IU/ML, AS NEEDED
     Route: 040
  6. ATACAND [Concomitant]
     Active Substance: CANDESARTAN CILEXETIL
     Dosage: 4 MG, 1X/DAY
     Route: 048
  7. KREDEX [Concomitant]
     Active Substance: CARVEDILOL
     Dosage: 12.5 MG, 2X/DAY
     Route: 048
  8. TAHOR [Concomitant]
     Active Substance: ATORVASTATIN CALCIUM
     Dosage: 40 MG, 1X/DAY
     Route: 048
  9. OXEOL [Concomitant]
     Dosage: 10 MG, DAILY
     Route: 048
  10. PRIMALAN [Concomitant]
     Active Substance: MEQUITAZINE
     Dosage: 10 MG, 1X/DAY
     Route: 048
  11. TRAMADOL HYDROCHLORIDE. [Interacting]
     Active Substance: TRAMADOL HYDROCHLORIDE
     Indication: PAIN
     Dosage: 100 MG, 2X/DAY
     Route: 048
     Dates: start: 20141210, end: 20141215
  12. GLUCOR [Concomitant]
     Active Substance: ACARBOSE
     Dosage: 30 MG, DAILY
     Route: 048
  13. BURINEX [Concomitant]
     Active Substance: BUMETANIDE
     Dosage: 5 MG, 1X/DAY
     Route: 048

REACTIONS (7)
  - Serotonin syndrome [Recovered/Resolved]
  - Muscle contractions involuntary [Recovered/Resolved]
  - Drug interaction [Recovered/Resolved]
  - Confusional state [Recovered/Resolved]
  - Myoclonus [Recovered/Resolved]
  - Fall [Unknown]
  - Creatinine renal clearance decreased [Unknown]

NARRATIVE: CASE EVENT DATE: 20141210
